FAERS Safety Report 9109751 (Version 8)
Quarter: 2014Q1

REPORT INFORMATION
  Report Type: Spontaneous
  Country: US (occurrence: US)
  Receive Date: 20130222
  Receipt Date: 20140221
  Transmission Date: 20141002
  Serious: Yes (Hospitalization, Other)
  Sender: FDA-Public Use
  Company Number: US-009507513-1206USA02947

PATIENT
  Sex: Female
  Weight: 79.37 kg

DRUGS (5)
  1. FOSAMAX [Suspect]
     Indication: OSTEOPENIA
     Dosage: 70 MG, QW
     Route: 048
     Dates: start: 20041230, end: 200806
  2. ALENDRONATE SODIUM [Suspect]
     Indication: OSTEOPENIA
     Dosage: 70 MG, QW
     Route: 048
     Dates: start: 20080623, end: 201106
  3. NEXIUM [Concomitant]
     Indication: GASTROOESOPHAGEAL REFLUX DISEASE
     Dosage: UNK
     Dates: start: 2003
  4. PANTOPRAZOLE [Concomitant]
     Dosage: UNK
     Dates: start: 2003
  5. CLINORIL [Concomitant]

REACTIONS (43)
  - Intramedullary rod insertion [Unknown]
  - Spinal fusion surgery [Unknown]
  - Lumbar radiculopathy [Unknown]
  - Lumbar spinal stenosis [Unknown]
  - Spinal osteoarthritis [Unknown]
  - Surgery [Unknown]
  - Femur fracture [Unknown]
  - Low turnover osteopathy [Unknown]
  - Vitamin D deficiency [Unknown]
  - Gastroenteritis viral [Unknown]
  - Cataract operation [Unknown]
  - Cataract operation [Unknown]
  - Dental implantation [Unknown]
  - Tooth extraction [Unknown]
  - Proteinuria [Unknown]
  - Anxiety [Unknown]
  - Chronic fatigue syndrome [Not Recovered/Not Resolved]
  - Sleep apnoea syndrome [Unknown]
  - Venous insufficiency [Unknown]
  - Fibromyalgia [Unknown]
  - Myositis [Unknown]
  - Autonomic neuropathy [Unknown]
  - Dyslipidaemia [Unknown]
  - Hyperkeratosis [Unknown]
  - Haematoma [Unknown]
  - Oestrogen deficiency [Unknown]
  - Hair growth abnormal [Unknown]
  - Oedema [Unknown]
  - Blood cholesterol increased [Unknown]
  - Bone lesion [Unknown]
  - Osteoarthritis [Unknown]
  - Bone scan abnormal [Unknown]
  - Spinal pain [Unknown]
  - Bone disorder [Unknown]
  - Bone cyst [Unknown]
  - Muscle spasms [Unknown]
  - Pruritus [Unknown]
  - Muscle spasms [Unknown]
  - Pain in extremity [Unknown]
  - Back pain [Not Recovered/Not Resolved]
  - Arthralgia [Unknown]
  - Pain in extremity [Unknown]
  - Arthralgia [Unknown]
